FAERS Safety Report 8837879 (Version 1)
Quarter: 2012Q4

REPORT INFORMATION
  Report Type: 
  Country: US (occurrence: US)
  Receive Date: 20121012
  Receipt Date: 20121012
  Transmission Date: 20130627
  Serious: Yes (Hospitalization)
  Sender: FDA-Public Use
  Company Number: US-BAYER-2012-103489

PATIENT
  Age: 36 Year
  Sex: Female

DRUGS (2)
  1. YAZ [Suspect]
  2. LISINOPRIL/HCTZ [Concomitant]
     Indication: HYPERTENSION
     Route: 048

REACTIONS (1)
  - Deep vein thrombosis [None]
